FAERS Safety Report 7499571-0 (Version None)
Quarter: 2011Q2

REPORT INFORMATION
  Report Type: 
  Country: None (occurrence: None)
  Receive Date: 20110524
  Receipt Date: 20110517
  Transmission Date: 20111010
  Serious: Yes (Hospitalization, Other)
  Sender: FDA-Public Use
  Company Number: JP-SANOFI-AVENTIS-2011SA030500

PATIENT
  Age: 66 Year
  Sex: Male

DRUGS (6)
  1. OXALIPLATIN [Suspect]
     Indication: RECTAL CANCER
     Dosage: DOSAGE : 1 X PER 2 WEEKS
     Route: 041
     Dates: start: 20090716, end: 20091225
  2. FLUOROURACIL [Suspect]
     Dosage: 1 X PER 2 WEEK
     Dates: start: 20090716, end: 20091225
  3. LEUCOVORIN CALCIUM [Concomitant]
     Dates: start: 20090716, end: 20090917
  4. LOXONIN [Concomitant]
     Dates: start: 20100514
  5. DEXAMETHASONE SODIUM PHOSPHATE [Concomitant]
  6. AVASTIN [Suspect]
     Indication: RECTAL CANCER METASTATIC
     Dosage: FREQUENCY: 1 X PER 2 WEEK
     Route: 041
     Dates: start: 20090930, end: 20100917

REACTIONS (4)
  - GASTROINTESTINAL PERFORATION [None]
  - GASTROINTESTINAL ANASTOMOTIC LEAK [None]
  - HYPOAESTHESIA [None]
  - PALMAR-PLANTAR ERYTHRODYSAESTHESIA SYNDROME [None]
